FAERS Safety Report 5300346-9 (Version None)
Quarter: 2007Q2

REPORT INFORMATION
  Report Type: 
  Country: None (occurrence: None)
  Receive Date: 20070411
  Receipt Date: 20070327
  Transmission Date: 20071010
  Serious: Yes (Hospitalization)
  Sender: FDA-Public Use
  Company Number: 2007JP001289

PATIENT
  Age: 48 Year
  Sex: Male

DRUGS (3)
  1. VESICARE [Suspect]
     Indication: POLLAKIURIA
     Dosage: 5 MG, UID/QD, ORAL
     Route: 048
     Dates: start: 20070208, end: 20070322
  2. MITIGLINIDE (MITIGLINIDE) PER ORAL NOS [Suspect]
     Dosage: ORAL
     Route: 048
     Dates: start: 20070125, end: 20070322
  3. BLADDERON (FLAVOXATE HYDROCHLORIDE) [Concomitant]

REACTIONS (4)
  - ALANINE AMINOTRANSFERASE INCREASED [None]
  - ASPARTATE AMINOTRANSFERASE INCREASED [None]
  - BLOOD ALKALINE PHOSPHATASE INCREASED [None]
  - LIVER DISORDER [None]
